FAERS Safety Report 25794536 (Version 1)
Quarter: 2025Q3

REPORT INFORMATION
  Report Type: Report from Study
  Country: US (occurrence: US)
  Receive Date: 20250912
  Receipt Date: 20250912
  Transmission Date: 20251021
  Serious: Yes (Other)
  Sender: ABBVIE
  Company Number: US-ABBVIE-6455004

PATIENT
  Sex: Male

DRUGS (1)
  1. RINVOQ [Suspect]
     Active Substance: UPADACITINIB
     Indication: Dermatitis atopic
     Route: 048
     Dates: start: 20220201

REACTIONS (5)
  - Skin cancer [Unknown]
  - Dermatitis atopic [Unknown]
  - Herpes zoster [Not Recovered/Not Resolved]
  - Infection [Unknown]
  - Immunodeficiency [Unknown]
